FAERS Safety Report 5763416-7 (Version None)
Quarter: 2008Q2

REPORT INFORMATION
  Report Type: 
  Country: None (occurrence: None)
  Receive Date: 20080604
  Receipt Date: 20080604
  Transmission Date: 20081010
  Serious: Yes (Hospitalization)
  Sender: FDA-Public Use
  Company Number: None

PATIENT
  Age: 16 Year
  Sex: Male

DRUGS (7)
  1. CIPROFLOXACIN [Suspect]
     Indication: PERIRECTAL ABSCESS
     Dosage: 400 MG B.I.D., IV
     Route: 042
  2. AZATHIOPRINE [Concomitant]
  3. MESALAMINE [Concomitant]
  4. LANSOPRAZOLE [Concomitant]
  5. FERROUS SULFATE TAB [Concomitant]
  6. METRONIDAZOLE [Concomitant]
  7. METHYLPREDNISOLONE [Concomitant]

REACTIONS (2)
  - BRADYCARDIA [None]
  - ELECTROCARDIOGRAM QT PROLONGED [None]
